FAERS Safety Report 24375178 (Version 2)
Quarter: 2025Q3

REPORT INFORMATION
  Report Type: Report from Study
  Country: US (occurrence: US)
  Receive Date: 20240928
  Receipt Date: 20250929
  Transmission Date: 20251020
  Serious: Yes (Other)
  Sender: UCB
  Company Number: US-UCBSA-2024048025

PATIENT
  Age: 22 Year
  Sex: Female
  Weight: 95.238 kg

DRUGS (15)
  1. BIMEKIZUMAB [Suspect]
     Active Substance: BIMEKIZUMAB
     Indication: Hidradenitis
     Dosage: 320 MILLIGRAM, EV 4 WEEKS
     Route: 058
     Dates: start: 20240915
  2. BIMEKIZUMAB [Suspect]
     Active Substance: BIMEKIZUMAB
     Indication: Off label use
  3. BIMEKIZUMAB [Suspect]
     Active Substance: BIMEKIZUMAB
     Indication: Psoriasis
  4. PREDNISONE [Concomitant]
     Active Substance: PREDNISONE
     Indication: Hidradenitis
     Dosage: 80 MILLIGRAM, ONCE DAILY (QD)
     Dates: start: 20240916
  5. METRONIDAZOLE [Concomitant]
     Active Substance: METRONIDAZOLE
     Indication: Hidradenitis
     Dosage: 1 AND 0.75 PERCENT ONCE DAILY (QD)
     Dates: start: 20250611
  6. METRONIDAZOLE [Concomitant]
     Active Substance: METRONIDAZOLE
     Dosage: 1 AND 0.75 PERCENT ONCE DAILY (QD)
     Dates: start: 20250717
  7. CLINDAGEL [Concomitant]
     Active Substance: CLINDAMYCIN PHOSPHATE
     Indication: Hidradenitis
     Dosage: UNK, 2X/DAY (BID)
     Dates: start: 20231228
  8. COSENTYX [Concomitant]
     Active Substance: SECUKINUMAB
     Indication: Hidradenitis
     Dosage: 300 MILLIGRAM, EV 2 WEEKS(QOW)
     Route: 058
     Dates: start: 202302
  9. DOXYCYCLINE [Concomitant]
     Active Substance: DOXYCYCLINE
     Indication: Hidradenitis
     Dosage: 100 MILLIGRAM, 2X/DAY (BID)
     Route: 048
     Dates: start: 20240912
  10. DOXYCYCLINE [Concomitant]
     Active Substance: DOXYCYCLINE
     Dates: start: 20241202
  11. MOMETASONE FUROATE [Concomitant]
     Active Substance: MOMETASONE FUROATE
     Indication: Product used for unknown indication
     Dosage: 0.1 PERCENT, ONCE DAILY (QD)
     Dates: start: 20240124
  12. VTAMA [Concomitant]
     Active Substance: TAPINAROF
     Indication: Hidradenitis
     Dosage: UNK UNK, ONCE DAILY (QD)
     Dates: start: 20250611
  13. CLOBETASOL [Concomitant]
     Active Substance: CLOBETASOL
     Indication: Hidradenitis
     Dates: start: 20250611
  14. FLUCONAZOLE [Concomitant]
     Active Substance: FLUCONAZOLE
     Indication: Fungal infection
     Dosage: 200 MILLIGRAM, ONCE DAILY (QD)
     Route: 048
     Dates: start: 20250717
  15. DOXYCYCLINE HYCLATE [Concomitant]
     Active Substance: DOXYCYCLINE HYCLATE
     Indication: Product used for unknown indication
     Route: 048
     Dates: start: 20250611

REACTIONS (10)
  - Breast abscess [Unknown]
  - Abdominal abscess [Unknown]
  - Hidradenitis [Unknown]
  - Condition aggravated [Unknown]
  - Abscess drainage [Unknown]
  - Skin plaque [Unknown]
  - Eczema [Unknown]
  - Nodule [Unknown]
  - Scar [Unknown]
  - Off label use [Unknown]

NARRATIVE: CASE EVENT DATE: 20240901
